FAERS Safety Report 5019724-0 (Version None)
Quarter: 2006Q2

REPORT INFORMATION
  Report Type: 
  Country: None (occurrence: None)
  Receive Date: 20060601
  Receipt Date: 20060522
  Transmission Date: 20061013
  Serious: Yes (Other)
  Sender: FDA-Public Use
  Company Number: 2006067297

PATIENT
  Age: 45 Year
  Sex: Male
  Weight: 99 kg

DRUGS (1)
  1. ATORVASTATIN CALCIUM [Suspect]
     Indication: HYPERCHOLESTEROLAEMIA
     Dosage: (10 MG,), ORAL
     Route: 048
     Dates: start: 20060407, end: 20060421

REACTIONS (4)
  - ARTHRALGIA [None]
  - JAUNDICE [None]
  - MUSCULOSKELETAL STIFFNESS [None]
  - MYALGIA [None]
